FAERS Safety Report 22092689 (Version 1)
Quarter: 2023Q1

REPORT INFORMATION
  Report Type: Spontaneous
  Country: US (occurrence: US)
  Receive Date: 20230314
  Receipt Date: 20230314
  Transmission Date: 20230417
  Serious: Yes (Other)
  Sender: FDA-Public Use
  Company Number: US-AMGEN-USASP2023039985

PATIENT

DRUGS (3)
  1. PROLIA [Suspect]
     Active Substance: DENOSUMAB
     Indication: Osteoporosis
     Dosage: UNK
     Route: 065
  2. VITAMIN D [Concomitant]
     Active Substance: VITAMIN D NOS
     Indication: Vitamin supplementation
     Dosage: MORE THAN 800 IU
  3. CALCIUM [Concomitant]
     Active Substance: CALCIUM
     Indication: Mineral supplementation
     Dosage: 1200 MILLIGRAM, QD

REACTIONS (8)
  - Pelvic fracture [Unknown]
  - Lower limb fracture [Unknown]
  - Osteoporotic fracture [Unknown]
  - Rib fracture [Unknown]
  - Foot fracture [Unknown]
  - Ankle fracture [Unknown]
  - Forearm fracture [Unknown]
  - Upper limb fracture [Unknown]
